FAERS Safety Report 5002914-0 (Version None)
Quarter: 2006Q2

REPORT INFORMATION
  Report Type: 
  Country: None (occurrence: None)
  Receive Date: 20060512
  Receipt Date: 20060501
  Transmission Date: 20061013
  Serious: Yes (Hospitalization, Disabling)
  Sender: FDA-Public Use
  Company Number: 224591

PATIENT
  Age: 60 Year
  Sex: Male
  Weight: 57.5 kg

DRUGS (7)
  1. BEVACIZUMAB OR PLACEBO (BEVACIZUMAB) [Suspect]
     Indication: NON-SMALL CELL LUNG CANCER
     Dosage: Q3W, INTRAVENOUS
     Route: 042
     Dates: start: 20060313, end: 20060403
  2. ERLOTINIB (ERLOTINIB) TABLET [Suspect]
     Indication: NON-SMALL CELL LUNG CANCER
     Dosage: QD, ORAL
     Route: 048
     Dates: start: 20060313, end: 20060423
  3. AVASTIN [Concomitant]
  4. TAXOTERE [Concomitant]
  5. DILAUDID [Concomitant]
  6. ZOMETA [Concomitant]
  7. MOTRIN [Concomitant]

REACTIONS (5)
  - CLOSTRIDIUM DIFFICILE TOXIN TEST POSITIVE [None]
  - FATIGUE [None]
  - HAEMOGLOBIN DECREASED [None]
  - PERIRECTAL ABSCESS [None]
  - PROCTALGIA [None]
